FAERS Safety Report 4262061-2 (Version None)
Quarter: 2004Q1

REPORT INFORMATION
  Report Type: 
  Country: None (occurrence: None)
  Receive Date: 20040102
  Receipt Date: 20031204
  Transmission Date: 20041129
  Serious: Yes (Death, Hospitalization)
  Sender: FDA-Public Use
  Company Number: IT-GLAXOSMITHKLINE-B0316998A

PATIENT
  Sex: Male

DRUGS (2)
  1. TRIZIVIR [Suspect]
  2. METHADONE HCL [Concomitant]
     Indication: DRUG DEPENDENCE

REACTIONS (2)
  - JAUNDICE [None]
  - LACTIC ACIDOSIS [None]
